FAERS Safety Report 10734240 (Version 3)
Quarter: 2015Q2

REPORT INFORMATION
  Report Type: Spontaneous
  Country: JP (occurrence: JP)
  Receive Date: 20150123
  Receipt Date: 20150401
  Transmission Date: 20150821
  Serious: Yes (Life-Threatening, Hospitalization, Other)
  Sender: FDA-Public Use
  Company Number: JP-ELI_LILLY_AND_COMPANY-JP201501005517

PATIENT
  Age: 37 Year
  Sex: Male

DRUGS (8)
  1. RISPERDAL [Interacting]
     Active Substance: RISPERIDONE
     Indication: DELUSION
     Dosage: 1 MG, QD
     Route: 048
     Dates: start: 20100123, end: 20100123
  2. CONTOMIN                           /00011902/ [Interacting]
     Active Substance: CHLORPROMAZINE HYDROCHLORIDE
     Indication: SEDATION
     Dosage: 50 MG, QD
     Route: 048
     Dates: start: 20100123, end: 20100123
  3. ZYPREXA [Interacting]
     Active Substance: OLANZAPINE
     Dosage: 10 MG, QD
     Route: 048
     Dates: start: 20100123, end: 20100123
  4. ZYPREXA [Interacting]
     Active Substance: OLANZAPINE
     Dosage: 12.5 MG, QD
     Route: 048
     Dates: start: 20091003
  5. ZYPREXA [Suspect]
     Active Substance: OLANZAPINE
     Indication: SCHIZOPHRENIA
     Dosage: 2.5 MG, QD
     Route: 048
     Dates: start: 20090815
  6. VEGETAMIN A [Interacting]
     Active Substance: CHLORPROMAZINE HYDROCHLORIDE\PHENOBARBITAL\PROMETHAZINE
     Indication: SEDATION
     Dosage: 1 DF, QD
     Route: 048
     Dates: start: 20100123, end: 20100123
  7. SERENACE [Interacting]
     Active Substance: HALOPERIDOL
     Indication: SEDATION
     Dosage: 20 MG, QD
     Route: 042
     Dates: start: 20100123, end: 20100123
  8. ROHYPNOL [Interacting]
     Active Substance: FLUNITRAZEPAM
     Indication: SEDATION
     Dosage: 2 MG, QD
     Route: 048
     Dates: start: 20100123, end: 20100123

REACTIONS (8)
  - Blood pressure decreased [Recovered/Resolved with Sequelae]
  - Drug interaction [Unknown]
  - Nausea [Unknown]
  - Malaise [Unknown]
  - Restlessness [Unknown]
  - Insomnia [Unknown]
  - Respiratory depression [Recovered/Resolved with Sequelae]
  - Schizophrenia [Unknown]

NARRATIVE: CASE EVENT DATE: 20100124
